FAERS Safety Report 8306842 (Version 2)
Quarter: 2015Q2

REPORT INFORMATION
  Report Type: Spontaneous
  Country: US (occurrence: US)
  Receive Date: 20111222
  Receipt Date: 20150630
  Transmission Date: 20150821
  Serious: Yes (Other)
  Sender: FDA-Public Use
  Company Number: US-BAYER-2011-119397

PATIENT
  Sex: Female

DRUGS (1)
  1. MIRENA [Suspect]
     Active Substance: LEVONORGESTREL
     Dosage: DAILY DOSE 20 ?G
     Route: 015
     Dates: start: 20100606, end: 20120612

REACTIONS (10)
  - Swelling [None]
  - Incisional hernia [None]
  - Wound haemorrhage [None]
  - Pain [None]
  - Vaginal haemorrhage [None]
  - Menstruation delayed [None]
  - Injury [None]
  - Uterine perforation [None]
  - Emotional distress [None]
  - Post procedural complication [None]

NARRATIVE: CASE EVENT DATE: 201205
